FAERS Safety Report 5755114-0 (Version None)
Quarter: 2008Q2

REPORT INFORMATION
  Report Type: 
  Country: None (occurrence: None)
  Receive Date: 20080602
  Receipt Date: 20071109
  Transmission Date: 20081010
  Serious: No
  Sender: FDA-Public Use
  Company Number: A0693604A

PATIENT
  Age: 47 Year
  Sex: Female

DRUGS (1)
  1. AMOXICILLIN + CLAVULANATE POTASSIUM [Suspect]
     Indication: ACUTE SINUSITIS
     Dosage: 850MG TWICE PER DAY
     Route: 048
     Dates: start: 20071014

REACTIONS (2)
  - DIARRHOEA [None]
  - DRUG INEFFECTIVE [None]
